FAERS Safety Report 6848326-6 (Version None)
Quarter: 2010Q3

REPORT INFORMATION
  Report Type: 
  Country: None (occurrence: None)
  Receive Date: 20100716
  Receipt Date: 20100706
  Transmission Date: 20110219
  Serious: Yes (Other)
  Sender: FDA-Public Use
  Company Number: BR-PFIZER INC-2010068951

PATIENT
  Age: 37 Year
  Sex: Male
  Weight: 74 kg

DRUGS (2)
  1. CHAMPIX [Suspect]
     Indication: TOBACCO USER
     Dosage: 1 MG, 1X/DAY
     Route: 048
     Dates: start: 20100527
  2. CELESTAMINE TAB [Concomitant]
     Indication: SINUSITIS
     Dosage: UNK
     Dates: start: 19900101, end: 20100101

REACTIONS (2)
  - AMNESIA [None]
  - NERVOUSNESS [None]
